FAERS Safety Report 6234687-8 (Version None)
Quarter: 2009Q3

REPORT INFORMATION
  Report Type: 
  Country: None (occurrence: None)
  Receive Date: 20090616
  Receipt Date: 20090616
  Transmission Date: 20100115
  Serious: Yes (Other)
  Sender: FDA-Public Use
  Company Number: None

PATIENT
  Age: 22 Year
  Sex: Female
  Weight: 63.5036 kg

DRUGS (1)
  1. BISOPROLOL FUMARATE [Suspect]
     Indication: TACHYCARDIA
     Dosage: 5MG QHS PO
     Route: 048
     Dates: start: 20090501

REACTIONS (4)
  - ABNORMAL DREAMS [None]
  - FATIGUE [None]
  - HALLUCINATION, AUDITORY [None]
  - MIDDLE INSOMNIA [None]
